FAERS Safety Report 12845424 (Version 2)
Quarter: 2016Q4

REPORT INFORMATION
  Report Type: Spontaneous
  Country: US (occurrence: US)
  Receive Date: 20161013
  Receipt Date: 20161101
  Transmission Date: 20170207
  Serious: Yes (Other)
  Sender: FDA-Public Use
  Company Number: US-BAYER-2016-113247

PATIENT
  Age: 38 Year
  Sex: Female

DRUGS (1)
  1. MIRENA [Suspect]
     Active Substance: LEVONORGESTREL
     Dosage: 20 MCG/24HR, CONT
     Route: 015
     Dates: end: 20150925

REACTIONS (3)
  - Fallopian tube perforation [Recovered/Resolved]
  - Ovarian adhesion [Recovered/Resolved]
  - Genital haemorrhage [Unknown]

NARRATIVE: CASE EVENT DATE: 20160603
